FAERS Safety Report 24832895 (Version 1)
Quarter: 2025Q1

REPORT INFORMATION
  Report Type: Spontaneous
  Country: DE (occurrence: DE)
  Receive Date: 20250111
  Receipt Date: 20250111
  Transmission Date: 20250409
  Serious: Yes (Death, Hospitalization, Other)
  Sender: AUROBINDO
  Company Number: DE-002147023-NVSC2024DE221751

PATIENT
  Sex: Female
  Weight: 122 kg

DRUGS (3)
  1. FULVESTRANT [Suspect]
     Active Substance: FULVESTRANT
     Indication: Hormone receptor positive HER2 negative breast cancer
     Route: 030
     Dates: start: 20200211
  2. KISQALI [Suspect]
     Active Substance: RIBOCICLIB
     Indication: Hormone receptor positive HER2 negative breast cancer
     Dosage: 600 MILLIGRAM, ONCE A DAY (600 MG, QD (SCHEMA 21 DAYS INTAKE, 7 DAYS PAUSE))
     Route: 048
     Dates: start: 20200310, end: 20220915
  3. KISQALI [Suspect]
     Active Substance: RIBOCICLIB
     Dosage: 600 MILLIGRAM, ONCE A DAY (600 MG, QD (SCHEMA 21 DAYS INTAKE, 7 DAYS PAUSE))
     Route: 048
     Dates: start: 20221117

REACTIONS (2)
  - Oesophageal adenocarcinoma [Fatal]
  - Second primary malignancy [Fatal]

NARRATIVE: CASE EVENT DATE: 20240222
